FAERS Safety Report 10634026 (Version 1)
Quarter: 2014Q4

REPORT INFORMATION
  Report Type: Spontaneous
  Country: US (occurrence: None)
  Receive Date: 20141203
  Receipt Date: 20141203
  Transmission Date: 20150529
  Serious: No
  Sender: FDA-Public Use
  Company Number: None

PATIENT
  Age: 51 Year
  Sex: Female

DRUGS (2)
  1. ANCEF [Suspect]
     Active Substance: CEFAZOLIN SODIUM
     Indication: PREOPERATIVE CARE
     Route: 042
     Dates: start: 20141118
  2. ANCEF [Suspect]
     Active Substance: CEFAZOLIN SODIUM
     Indication: SURGERY
     Route: 042
     Dates: start: 20141118

REACTIONS (2)
  - Rash macular [None]
  - Flushing [None]

NARRATIVE: CASE EVENT DATE: 20141118
